FAERS Safety Report 14004918 (Version 4)
Quarter: 2017Q4

REPORT INFORMATION
  Report Type: Spontaneous
  Country: CA (occurrence: CA)
  Receive Date: 20170922
  Receipt Date: 20171026
  Transmission Date: 20180321
  Serious: No
  Sender: FDA-Public Use
  Company Number: CA-PFIZER INC-2017402946

PATIENT
  Age: 54 Year
  Sex: Female
  Weight: 69.5 kg

DRUGS (7)
  1. LOPERAMIDE [Concomitant]
     Active Substance: LOPERAMIDE
     Dosage: UNK, AS NEEDED
  2. PREDNISONE. [Concomitant]
     Active Substance: PREDNISONE
     Dosage: DECREASING DOSE
  3. VITAMIN D [Concomitant]
     Active Substance: CHOLECALCIFEROL
     Dosage: UNK
  4. METHOTREXATE SODIUM. [Suspect]
     Active Substance: METHOTREXATE SODIUM
     Indication: CROHN^S DISEASE
     Dosage: 25 MG, WEEKLY
     Dates: start: 201704, end: 201709
  5. PREDNISONE. [Concomitant]
     Active Substance: PREDNISONE
     Dosage: 30 MG, WEEKLY
     Dates: start: 20170914
  6. CALCIUM [Concomitant]
     Active Substance: CALCIUM
     Dosage: UNK
  7. CORTISONE [Concomitant]
     Active Substance: CORTISONE\HYDROCORTISONE
     Dosage: UNK

REACTIONS (4)
  - Product use in unapproved indication [Unknown]
  - Drug ineffective for unapproved indication [Unknown]
  - Insomnia [Recovered/Resolved]
  - Drug intolerance [Unknown]

NARRATIVE: CASE EVENT DATE: 201704
